FAERS Safety Report 12577059 (Version 2)
Quarter: 2016Q4

REPORT INFORMATION
  Report Type: Spontaneous
  Country: US (occurrence: US)
  Receive Date: 20160720
  Receipt Date: 20161019
  Transmission Date: 20170207
  Serious: No
  Sender: FDA-Public Use
  Company Number: US-OTSUKA-2016_012954

PATIENT
  Age: 70 Year
  Sex: Female

DRUGS (3)
  1. REXULTI [Suspect]
     Active Substance: BREXPIPRAZOLE
     Dosage: 1 MG, UNK
     Route: 048
     Dates: start: 2016, end: 2016
  2. REXULTI [Suspect]
     Active Substance: BREXPIPRAZOLE
     Indication: MAJOR DEPRESSION
     Dosage: 0.5 MG, UNK
     Route: 048
     Dates: start: 2016, end: 2016
  3. LEVOMILNACIPRAN [Suspect]
     Active Substance: LEVOMILNACIPRAN
     Indication: DEPRESSION
     Dosage: UNK
     Route: 065

REACTIONS (2)
  - Tremor [Recovering/Resolving]
  - Drug effect decreased [Unknown]
